FAERS Safety Report 5248188-7 (Version None)
Quarter: 2007Q1

REPORT INFORMATION
  Report Type: 
  Country: None (occurrence: None)
  Receive Date: 20070227
  Receipt Date: 20060605
  Transmission Date: 20070707
  Serious: No
  Sender: FDA-Public Use
  Company Number: US-BRISTOL-MYERS SQUIBB COMPANY-13401294

PATIENT
  Age: 56 Year
  Sex: Female
  Weight: 93 kg

DRUGS (6)
  1. METFORMIN HCL [Suspect]
     Indication: DIABETES MELLITUS
  2. LISINOPRIL [Concomitant]
  3. GLYBURIDE [Concomitant]
  4. TYLENOL W/ CODEINE [Concomitant]
  5. KLONOPIN [Concomitant]
  6. PAXIL [Concomitant]

REACTIONS (3)
  - BLOOD GLUCOSE INCREASED [None]
  - DRUG INEFFECTIVE [None]
  - RASH [None]
